FAERS Safety Report 7039424-5 (Version None)
Quarter: 2010Q3

REPORT INFORMATION
  Report Type: 
  Country: None (occurrence: None)
  Receive Date: 20100930
  Receipt Date: 20100914
  Transmission Date: 20110219
  Serious: Yes (Other)
  Sender: FDA-Public Use
  Company Number: 20100618CINRY1521

PATIENT
  Age: 49 Year
  Sex: Female
  Weight: 146.9654 kg

DRUGS (25)
  1. CINRYZE [Suspect]
     Indication: HEREDITARY ANGIOEDEMA
     Dosage: (1000 UNIT, 2 IN 1 WK), (100 UNIT, 1 IN 3 D), INTRAVENOUS
     Route: 042
     Dates: start: 20100422, end: 20100524
  2. CINRYZE [Suspect]
     Indication: PROPHYLAXIS
     Dosage: (1000 UNIT, 2 IN 1 WK), (100 UNIT, 1 IN 3 D), INTRAVENOUS
     Route: 042
     Dates: start: 20100422, end: 20100524
  3. CINRYZE [Suspect]
     Indication: HEREDITARY ANGIOEDEMA
     Dosage: (1000 UNIT, 2 IN 1 WK), (100 UNIT, 1 IN 3 D), INTRAVENOUS
     Route: 042
     Dates: start: 20100525, end: 20100728
  4. CINRYZE [Suspect]
     Indication: PROPHYLAXIS
     Dosage: (1000 UNIT, 2 IN 1 WK), (100 UNIT, 1 IN 3 D), INTRAVENOUS
     Route: 042
     Dates: start: 20100525, end: 20100728
  5. CELEBREX [Concomitant]
  6. CYMBALTA [Concomitant]
  7. ATENOLOL [Concomitant]
  8. AMLODIPINE [Concomitant]
  9. METFORMIN HCL [Concomitant]
  10. BUMETANIDE [Concomitant]
  11. POTASSIUM ER (POTASSIUM) [Concomitant]
  12. ZOLOFT [Concomitant]
  13. NEXIUM [Concomitant]
  14. ALPRAZOLAM [Concomitant]
  15. CETIRIZINE HCL [Concomitant]
  16. DICYCLOMINE [Concomitant]
  17. HYDROCODONE BITARTRATE [Concomitant]
  18. CALCIUM D (LEVOKIT CA) (TABLETS) [Concomitant]
  19. CITRUCEL (METHYLCELLULOSE) [Concomitant]
  20. DANAZOL [Concomitant]
  21. BUTAMIDE (TOLBUTAMIDE) [Concomitant]
  22. CLONAZEPAM [Concomitant]
  23. LUNESTA [Concomitant]
  24. CITRACAL (CALCIUM CITRATE) [Concomitant]
  25. IBUPROFEN [Concomitant]

REACTIONS (18)
  - ALANINE AMINOTRANSFERASE INCREASED [None]
  - APHTHOUS STOMATITIS [None]
  - ASPARTATE AMINOTRANSFERASE INCREASED [None]
  - BLOOD ALKALINE PHOSPHATASE INCREASED [None]
  - BLOOD GLUCOSE INCREASED [None]
  - DECREASED APPETITE [None]
  - FATIGUE [None]
  - FEELING ABNORMAL [None]
  - HEADACHE [None]
  - HEPATIC ENZYME INCREASED [None]
  - HEREDITARY ANGIOEDEMA [None]
  - PAIN [None]
  - PALPITATIONS [None]
  - PHOTOPHOBIA [None]
  - PROTEIN TOTAL INCREASED [None]
  - PRURITUS GENERALISED [None]
  - RASH [None]
  - WEIGHT DECREASED [None]
